FAERS Safety Report 5775148-X (Version None)
Quarter: 2008Q2

REPORT INFORMATION
  Report Type: 
  Country: None (occurrence: None)
  Receive Date: 20080616
  Receipt Date: 20080616
  Transmission Date: 20081010
  Serious: Yes (Other)
  Sender: FDA-Public Use
  Company Number: None

PATIENT
  Sex: Male
  Weight: 45.3597 kg

DRUGS (1)
  1. SINGULAIR [Suspect]
     Indication: MULTIPLE ALLERGIES
     Dosage: 1  1  PO
     Route: 048
     Dates: start: 20050301, end: 20070827

REACTIONS (6)
  - ABNORMAL BEHAVIOUR [None]
  - ARTHRALGIA [None]
  - EDUCATIONAL PROBLEM [None]
  - OVERDOSE [None]
  - PHOTOSENSITIVITY REACTION [None]
  - PUBERTY [None]
